FAERS Safety Report 25359975 (Version 1)
Quarter: 2025Q2

REPORT INFORMATION
  Report Type: Report from Study
  Country: US (occurrence: US)
  Receive Date: 20250526
  Receipt Date: 20250526
  Transmission Date: 20250716
  Serious: Yes (Other)
  Sender: ABBVIE
  Company Number: US-ABBVIE-6291817

PATIENT
  Sex: Male

DRUGS (1)
  1. HUMIRA [Suspect]
     Active Substance: ADALIMUMAB
     Indication: Psoriatic arthropathy
     Route: 058
     Dates: start: 20160519, end: 202202

REACTIONS (3)
  - Hip arthroplasty [Recovered/Resolved]
  - Recurrent cancer [Recovered/Resolved]
  - Neoplasm malignant [Recovered/Resolved]
